FAERS Safety Report 5646648-8 (Version None)
Quarter: 2008Q1

REPORT INFORMATION
  Report Type: 
  Country: None (occurrence: None)
  Receive Date: 20080303
  Receipt Date: 20080220
  Transmission Date: 20080703
  Serious: Yes (Other)
  Sender: FDA-Public Use
  Company Number: PHEH2007US14665

PATIENT
  Age: 85 Year
  Sex: Female

DRUGS (2)
  1. DIOVAN [Suspect]
  2. NEURONTIN [Suspect]
     Indication: TRIGEMINAL NEURALGIA
     Route: 065

REACTIONS (3)
  - CONDITION AGGRAVATED [None]
  - DRUG INTERACTION [None]
  - TRIGEMINAL NEURALGIA [None]
